FAERS Safety Report 23240601 (Version 1)
Quarter: 2023Q4

REPORT INFORMATION
  Report Type: Spontaneous
  Country: US (occurrence: None)
  Receive Date: 20231129
  Receipt Date: 20231129
  Transmission Date: 20240110
  Serious: Yes (Hospitalization)
  Sender: FDA-Public Use
  Company Number: None

PATIENT
  Sex: Female

DRUGS (9)
  1. HYDROXYZINE PAMOATE [Suspect]
     Active Substance: HYDROXYZINE PAMOATE
     Indication: Anxiety
     Dosage: OTHER FREQUENCY : Q8H PRN;?
     Route: 048
     Dates: start: 202012
  2. KETOCONAZOLE CRE [Concomitant]
  3. VALACYCLOVIR [Concomitant]
  4. DAVATO [Concomitant]
  5. LISINOPRIL [Concomitant]
     Active Substance: LISINOPRIL
  6. SYMBICORT MDI INHALER [Concomitant]
  7. GABAPENTIN [Concomitant]
  8. TIZANIDINE HCL [Concomitant]
  9. AMOXICILLIN [Concomitant]

REACTIONS (2)
  - Gastritis [None]
  - Intestinal obstruction [None]
